FAERS Safety Report 5812863-3 (Version None)
Quarter: 2008Q3

REPORT INFORMATION
  Report Type: 
  Country: None (occurrence: None)
  Receive Date: 20080717
  Receipt Date: 20070808
  Transmission Date: 20090109
  Serious: No
  Sender: FDA-Public Use
  Company Number: A0643033A

PATIENT
  Age: 58 Year
  Sex: Male

DRUGS (4)
  1. NICORETTE [Suspect]
     Route: 062
  2. NICODERM CQ [Suspect]
     Route: 062
  3. MIRALAX [Concomitant]
  4. NARCOTIC [Concomitant]

REACTIONS (4)
  - DIARRHOEA [None]
  - FLATULENCE [None]
  - HICCUPS [None]
  - INTENTIONAL DRUG MISUSE [None]
